FAERS Safety Report 26093780 (Version 1)
Quarter: 2025Q4

REPORT INFORMATION
  Report Type: Spontaneous
  Country: US (occurrence: US)
  Receive Date: 20251126
  Receipt Date: 20251126
  Transmission Date: 20260117
  Serious: No
  Sender: MYLAN
  Company Number: US-MYLANLABS-2025M1098499

PATIENT
  Age: 72 Year
  Sex: Female
  Weight: 70.31 kg

DRUGS (1)
  1. BREYNA [Suspect]
     Active Substance: BUDESONIDE\FORMOTEROL FUMARATE
     Indication: Cough
     Dosage: 2 DOSAGE FORM, BID (TWO PUFFS IN THE MORNING AND TWO PUFFS IN THE EVENING)
     Dates: start: 20251108, end: 20251109

REACTIONS (2)
  - Contusion [Recovering/Resolving]
  - Product use in unapproved indication [Unknown]

NARRATIVE: CASE EVENT DATE: 20251110
